FAERS Safety Report 4345583-5 (Version None)
Quarter: 2004Q2

REPORT INFORMATION
  Report Type: 
  Country: None (occurrence: None)
  Receive Date: 20040421
  Receipt Date: 20040405
  Transmission Date: 20050107
  Serious: Yes (Hospitalization)
  Sender: FDA-Public Use
  Company Number: 195618

PATIENT
  Age: 72 Year
  Sex: Female
  Weight: 63.5036 kg

DRUGS (8)
  1. AVONEX [Suspect]
     Indication: MULTIPLE SCLEROSIS
     Dosage: 30 MCG QW IM
     Route: 030
     Dates: start: 19980501, end: 20011101
  2. AVONEX [Suspect]
     Indication: MULTIPLE SCLEROSIS
     Dosage: 30 MCG QW IM
     Route: 030
     Dates: start: 20040328, end: 20040328
  3. LESCOL ^SANDOZ^ [Concomitant]
  4. ASPIRIN [Concomitant]
  5. OXYBUTYNIN [Concomitant]
  6. DIAZEPAM [Concomitant]
  7. BACLOFEN [Concomitant]
  8. LEVOXYL [Concomitant]

REACTIONS (13)
  - ASTHENIA [None]
  - BLADDER DISORDER [None]
  - CHILLS [None]
  - CONDITION AGGRAVATED [None]
  - DEPRESSION [None]
  - DIABETES MELLITUS [None]
  - FALL [None]
  - HYPERSOMNIA [None]
  - INFLUENZA LIKE ILLNESS [None]
  - MEMORY IMPAIRMENT [None]
  - MULTIPLE SCLEROSIS [None]
  - PYREXIA [None]
  - VOMITING [None]
